FAERS Safety Report 24875107 (Version 2)
Quarter: 2025Q1

REPORT INFORMATION
  Report Type: Spontaneous
  Country: DE (occurrence: DE)
  Receive Date: 20250122
  Receipt Date: 20250128
  Transmission Date: 20250409
  Serious: Yes (Hospitalization, Other)
  Sender: PFIZER
  Company Number: DE-PFM-2024-06469

PATIENT
  Age: 26 Year
  Sex: Male

DRUGS (3)
  1. BRAFTOVI [Suspect]
     Active Substance: ENCORAFENIB
     Indication: Cholangiocarcinoma
     Route: 065
  2. MEKTOVI [Suspect]
     Active Substance: BINIMETINIB
     Indication: Cholangiocarcinoma
     Dosage: 15 MG, BID (2/DAY)
     Route: 065
     Dates: start: 20241028
  3. CAPECITABINE [Concomitant]
     Active Substance: CAPECITABINE
     Indication: Cholangiocarcinoma
     Route: 048
     Dates: start: 20241028, end: 20241110

REACTIONS (4)
  - Diarrhoea [Unknown]
  - Post transplant lymphoproliferative disorder [Unknown]
  - Jaundice cholestatic [Unknown]
  - Off label use [Unknown]
